FAERS Safety Report 20726190 (Version 11)
Quarter: 2025Q3

REPORT INFORMATION
  Report Type: Spontaneous
  Country: US (occurrence: US)
  Receive Date: 20220419
  Receipt Date: 20250728
  Transmission Date: 20251021
  Serious: Yes (Other)
  Sender: PFIZER
  Company Number: US-PFIZER INC-202200186200

PATIENT
  Age: 65 Year
  Sex: Female
  Weight: 102.49 kg

DRUGS (35)
  1. IBRANCE [Suspect]
     Active Substance: PALBOCICLIB
     Indication: Breast cancer female
     Dosage: 75 MG, DAILY
     Route: 048
     Dates: start: 20210304
  2. IBRANCE [Suspect]
     Active Substance: PALBOCICLIB
     Indication: Breast cancer metastatic
     Route: 048
  3. IBRANCE [Suspect]
     Active Substance: PALBOCICLIB
     Dates: start: 20210501
  4. IBRANCE [Suspect]
     Active Substance: PALBOCICLIB
  5. IBRANCE [Suspect]
     Active Substance: PALBOCICLIB
     Dates: start: 202105
  6. IBRANCE [Suspect]
     Active Substance: PALBOCICLIB
     Route: 048
     Dates: start: 20250625
  7. LETROZOLE [Concomitant]
     Active Substance: LETROZOLE
     Indication: Breast cancer metastatic
     Dates: start: 202103, end: 202108
  8. LETROZOLE [Concomitant]
     Active Substance: LETROZOLE
     Dates: start: 20210501
  9. VERZENIO [Concomitant]
     Active Substance: ABEMACICLIB
     Indication: Breast cancer metastatic
     Dates: start: 202103, end: 202108
  10. NEURONTIN [Concomitant]
     Active Substance: GABAPENTIN
     Dosage: 300 MG, 1X/DAY (1 CAPSULE BY MOUTH EVERY NIGHT AT BEDTIME)
     Route: 048
  11. NEURONTIN [Concomitant]
     Active Substance: GABAPENTIN
     Dosage: 300 MG, 2X/DAY
     Route: 048
  12. ALBUTEROL SULFATE [Concomitant]
     Active Substance: ALBUTEROL SULFATE
  13. AMOXICILLIN [Concomitant]
     Active Substance: AMOXICILLIN
  14. BUMETANIDE [Concomitant]
     Active Substance: BUMETANIDE
  15. DEXAMETHASONE [Concomitant]
     Active Substance: DEXAMETHASONE
  16. DULOXETINE [Concomitant]
     Active Substance: DULOXETINE
  17. ELIQUIS [Concomitant]
     Active Substance: APIXABAN
  18. FLUTICASONE [Concomitant]
     Active Substance: FLUTICASONE
  19. FUROSEMIDE [Concomitant]
     Active Substance: FUROSEMIDE
  20. IBUPROFEN [Concomitant]
     Active Substance: IBUPROFEN
  21. LACOSAMIDE [Concomitant]
     Active Substance: LACOSAMIDE
  22. LIDOCAINE [Concomitant]
     Active Substance: LIDOCAINE
  23. LOPERAMIDE HYDROCHLORIDE [Concomitant]
     Active Substance: LOPERAMIDE HYDROCHLORIDE
  24. LORATADINE [Concomitant]
     Active Substance: LORATADINE
  25. MAGNESIUM OXIDE [Concomitant]
     Active Substance: MAGNESIUM OXIDE
  26. METHOCARBAMOL [Concomitant]
     Active Substance: METHOCARBAMOL
  27. METHYLPHENIDATE [Concomitant]
     Active Substance: METHYLPHENIDATE
  28. MIRALAX [Concomitant]
     Active Substance: POLYETHYLENE GLYCOL 3350
  29. NARCAN [Concomitant]
     Active Substance: NALOXONE HYDROCHLORIDE
  30. NYSTATIN [Concomitant]
     Active Substance: NYSTATIN
  31. ONDANSETRON [Concomitant]
     Active Substance: ONDANSETRON
  32. OXYCONTIN [Concomitant]
     Active Substance: OXYCODONE HYDROCHLORIDE
  33. SULFACETAMID [Concomitant]
  34. VERAPAMIL [Concomitant]
     Active Substance: VERAPAMIL HYDROCHLORIDE
  35. CHOLECALCIFEROL [Concomitant]
     Active Substance: CHOLECALCIFEROL

REACTIONS (11)
  - Spinal operation [Unknown]
  - Cerebral disorder [Unknown]
  - Dissociation [Unknown]
  - Fear [Unknown]
  - Confusional state [Unknown]
  - Fatigue [Not Recovered/Not Resolved]
  - Memory impairment [Unknown]
  - Depression [Not Recovered/Not Resolved]
  - Back pain [Unknown]
  - Off label use [Unknown]
  - Product use issue [Unknown]
